FAERS Safety Report 7361957-2 (Version None)
Quarter: 2011Q1

REPORT INFORMATION
  Report Type: 
  Country: None (occurrence: None)
  Receive Date: 20110318
  Receipt Date: 20110314
  Transmission Date: 20110831
  Serious: Yes (Death, Hospitalization, Other)
  Sender: FDA-Public Use
  Company Number: PHHY2011GB13295

PATIENT
  Age: 87 Year
  Sex: Female
  Weight: 50.8 kg

DRUGS (18)
  1. FUROSEMIDE [Concomitant]
     Dosage: 40 MG, QD
  2. LEVOTHYROXINE SODIUM [Concomitant]
     Dosage: 50 UG, QD
  3. TRIMETHOPRIM [Suspect]
     Dosage: 200 MG, BID
     Dates: start: 20100918
  4. OMEPRAZOLE [Concomitant]
     Dosage: 20 MG, QD
  5. TAZOCIN [Concomitant]
     Indication: LOWER RESPIRATORY TRACT INFECTION
     Dosage: 4.5 G,
  6. WARFARIN SODIUM [Interacting]
     Indication: DEEP VEIN THROMBOSIS
     Dosage: 3 MG, UNK
     Dates: start: 20100831, end: 20100919
  7. WARFARIN SODIUM [Interacting]
     Dates: start: 20101005, end: 20101007
  8. MOVIPREP [Concomitant]
     Dosage: 1 DF, QD
  9. WARFARIN SODIUM [Interacting]
     Dates: start: 20100923, end: 20100929
  10. FRAGMIN [Interacting]
     Indication: THROMBOSIS PROPHYLAXIS
     Dosage: 10000 IU, QD
     Route: 058
     Dates: start: 20100807, end: 20100919
  11. DIHYDROCODEINE BITARTRATE INJ [Concomitant]
     Dosage: 30 MG, 4 DF DAILY
  12. ZOPICLONE [Concomitant]
     Dosage: 3.75 MG, QD
  13. FRAGMIN [Interacting]
     Dosage: 5000 IU, QD
     Route: 058
     Dates: start: 20101005
  14. ACETAMINOPHEN [Concomitant]
     Dosage: 1000 MG, 4 TIMES DAILY
  15. FENTANYL [Concomitant]
     Dosage: 75 UG, Q72H
     Route: 062
     Dates: start: 20080101
  16. IBUPROFEN [Interacting]
     Dosage: 600 MG, TID
     Route: 048
     Dates: start: 20080101, end: 20100919
  17. FRAGMIN [Interacting]
     Dosage: 5000 IU, QD
     Route: 058
     Dates: start: 20101008
  18. AMPICILLIN SODIUM/SULBACTAM SODIUM [Concomitant]
     Dosage: 625 MG, TID

REACTIONS (13)
  - LOWER RESPIRATORY TRACT INFECTION [None]
  - SOMNOLENCE [None]
  - INJECTION SITE HAEMORRHAGE [None]
  - URINARY TRACT INFECTION [None]
  - CONTUSION [None]
  - DRUG INTERACTION [None]
  - DEATH [None]
  - GENERAL PHYSICAL HEALTH DETERIORATION [None]
  - SUBCUTANEOUS HAEMATOMA [None]
  - DYSPHAGIA [None]
  - MALAISE [None]
  - INTERNATIONAL NORMALISED RATIO INCREASED [None]
  - BLOOD PRESSURE DECREASED [None]
